FAERS Safety Report 5827136-2 (Version None)
Quarter: 2008Q3

REPORT INFORMATION
  Report Type: 
  Country: None (occurrence: None)
  Receive Date: 20080729
  Receipt Date: 20080729
  Transmission Date: 20090109
  Serious: Yes (Hospitalization)
  Sender: FDA-Public Use
  Company Number: None

PATIENT
  Sex: Female
  Weight: 103.8737 kg

DRUGS (7)
  1. THALOMID [Suspect]
     Indication: BLADDER CANCER
     Dosage: 100 MG QHS Q 28 DAYS PO
     Route: 048
     Dates: start: 20080620, end: 20080725
  2. XELODA [Suspect]
     Indication: BLADDER CANCER
     Dosage: 2000 MG QHS FOR 21 DAYS PO
     Route: 048
     Dates: start: 20080627, end: 20080725
  3. OXYCONTIN [Concomitant]
  4. OXYCODONE HCL [Concomitant]
  5. COUMADIN [Concomitant]
  6. KANZOLAMIDE [Concomitant]
  7. TEMODAR [Concomitant]

REACTIONS (7)
  - BRAIN MASS [None]
  - GAIT DISTURBANCE [None]
  - HEADACHE [None]
  - HYPOAESTHESIA [None]
  - NAUSEA [None]
  - PARAESTHESIA [None]
  - VOMITING [None]
